FAERS Safety Report 6259341-8 (Version None)
Quarter: 2009Q3

REPORT INFORMATION
  Report Type: 
  Country: None (occurrence: None)
  Receive Date: 20090707
  Receipt Date: 20090702
  Transmission Date: 20100115
  Serious: Yes (Death, Hospitalization)
  Sender: FDA-Public Use
  Company Number: GB-SANOFI-SYNTHELABO-F01200900637

PATIENT
  Sex: Male

DRUGS (6)
  1. LOPERAMIDE HYDROCHLORIDE [Suspect]
     Indication: DIARRHOEA
     Dosage: 2 TO 16 MG
     Dates: start: 20081208
  2. CODEINE [Suspect]
     Indication: ABDOMINAL PAIN
     Dates: start: 20081208
  3. BEVACIZUMAB [Suspect]
     Dosage: 100 MG
     Route: 042
     Dates: start: 20080728, end: 20080728
  4. CAPECITABINE [Suspect]
     Route: 048
     Dates: start: 20080211, end: 20080211
  5. FLUOROURACIL [Suspect]
     Indication: COLON CANCER METASTATIC
     Dosage: UNK
     Route: 042
     Dates: start: 20081201, end: 20081201
  6. OXALIPLATIN [Suspect]
     Dosage: UNK
     Route: 041
     Dates: start: 20081201, end: 20081201

REACTIONS (3)
  - ABDOMINAL PAIN [None]
  - DIARRHOEA [None]
  - VOMITING [None]
